FAERS Safety Report 4523888-2 (Version None)
Quarter: 2004Q4

REPORT INFORMATION
  Report Type: 
  Country: None (occurrence: None)
  Receive Date: 20041209
  Receipt Date: 20041209
  Transmission Date: 20050328
  Serious: No
  Sender: FDA-Public Use
  Company Number: None

PATIENT
  Sex: Male

DRUGS (2)
  1. ETANERCEPT 25MG [Suspect]
     Indication: PSORIASIS
     Dosage: 25MG  BIWEEK SUBCUTANEOUS
     Route: 058
     Dates: start: 20040101, end: 20040615
  2. ETANERCEPT 25MG [Suspect]
     Indication: PSORIATIC ARTHROPATHY
     Dosage: 25MG  BIWEEK SUBCUTANEOUS
     Route: 058
     Dates: start: 20040101, end: 20040615

REACTIONS (3)
  - EPISTAXIS [None]
  - HAEMATOCHEZIA [None]
  - HAEMOPTYSIS [None]
